FAERS Safety Report 8458610-0 (Version None)
Quarter: 2012Q2

REPORT INFORMATION
  Report Type: 
  Country: None (occurrence: None)
  Receive Date: 20120622
  Receipt Date: 20110804
  Transmission Date: 20120825
  Serious: Yes (Hospitalization)
  Sender: FDA-Public Use
  Company Number: JP-NOVOPROD-330155

PATIENT
  Age: 76 Year
  Sex: Female
  Weight: 57 kg

DRUGS (20)
  1. TRICHLORMETHIAZIDE [Concomitant]
     Dosage: UNK
     Route: 048
     Dates: start: 20040602
  2. AMARYL [Concomitant]
     Indication: BLOOD GLUCOSE INCREASED
     Dosage: 0.5 MG, QD
     Route: 048
     Dates: start: 20110602, end: 20110608
  3. VICTOZA [Suspect]
     Dosage: 0.6 MG, QD
     Route: 058
     Dates: start: 20110527
  4. CONIEL [Concomitant]
     Dosage: UNK
     Route: 048
     Dates: start: 20060808
  5. LIPITOR [Concomitant]
     Dosage: UNK
     Route: 048
     Dates: start: 20041219
  6. NIZATIDINE [Concomitant]
     Dosage: UNK
     Route: 048
     Dates: start: 20040602, end: 20040617
  7. VICTOZA [Suspect]
     Indication: TYPE 2 DIABETES MELLITUS
     Dosage: 0.3 MG, QD
     Route: 058
     Dates: start: 20110524
  8. ASPIRIN [Concomitant]
     Route: 048
  9. TENORMIN [Concomitant]
     Dosage: UNK
     Route: 048
     Dates: start: 20040602
  10. ALOSENN                            /00476901/ [Concomitant]
     Dosage: UNK
     Route: 048
     Dates: start: 20040602
  11. VICTOZA [Suspect]
     Dosage: 0.6 MG, QD
     Route: 058
     Dates: start: 20110613
  12. LASIX [Concomitant]
     Dosage: UNK
     Route: 048
     Dates: start: 20040602
  13. MICARDIS [Concomitant]
     Dosage: UNK
     Route: 048
     Dates: start: 20061114
  14. ARGAMATE [Concomitant]
     Dosage: UNK
     Route: 048
     Dates: start: 20041219, end: 20110630
  15. VICTOZA [Suspect]
     Dosage: 0.9 MG, QD
     Route: 058
     Dates: start: 20110531
  16. VICTOZA [Suspect]
     Dosage: 0.3 MG, QD
     Route: 058
     Dates: start: 20110623, end: 20110628
  17. WARFARIN SODIUM [Concomitant]
  18. AMLODIPINE [Concomitant]
     Dosage: UNK
     Route: 048
     Dates: start: 20040602
  19. ALLOPURINOL [Concomitant]
     Dosage: UNK
     Route: 048
     Dates: start: 20041219
  20. METFORMIN HCL [Concomitant]
     Indication: BLOOD GLUCOSE INCREASED
     Dosage: 500 MG, QD
     Route: 048
     Dates: start: 20110602

REACTIONS (7)
  - INAPPROPRIATE ANTIDIURETIC HORMONE SECRETION [None]
  - BLOOD GLUCOSE INCREASED [None]
  - HYPOGLYCAEMIA [None]
  - HYPONATRAEMIA [None]
  - ABDOMINAL DISCOMFORT [None]
  - DECREASED APPETITE [None]
  - NAUSEA [None]
